FAERS Safety Report 7580745-5 (Version None)
Quarter: 2011Q2

REPORT INFORMATION
  Report Type: 
  Country: None (occurrence: None)
  Receive Date: 20110629
  Receipt Date: 20110624
  Transmission Date: 20111010
  Serious: Yes (Other)
  Sender: FDA-Public Use
  Company Number: BE-PFIZER INC-2011126708

PATIENT
  Age: 73 Year
  Sex: Female
  Weight: 80 kg

DRUGS (6)
  1. PROLOPA [Concomitant]
     Dosage: 3000 MG, 1X/DAY
     Route: 048
  2. LYRICA [Suspect]
     Indication: NEURALGIA
     Dosage: 75 MG/DAY
     Route: 048
     Dates: start: 20110225, end: 20110101
  3. PRAMIPEXOLE DIHYCHLLORIDE [Concomitant]
     Dosage: 0.35 MG, 2X/DAY
     Route: 048
  4. LYRICA [Suspect]
     Dosage: 150 MG, 2X/DAY
     Route: 048
     Dates: start: 20110101, end: 20110601
  5. ELTHYRONE [Concomitant]
     Dosage: 0.1 MG
  6. CLOZAPINE [Concomitant]
     Dosage: 25 MG, 1X/DAY

REACTIONS (4)
  - RASH GENERALISED [None]
  - FALL [None]
  - DIZZINESS [None]
  - GAIT DISTURBANCE [None]
